FAERS Safety Report 20252169 (Version 1)
Quarter: 2021Q4

REPORT INFORMATION
  Report Type: Spontaneous
  Country: US (occurrence: US)
  Receive Date: 20211229
  Receipt Date: 20211229
  Transmission Date: 20220303
  Serious: No
  Sender: FDA-Public Use
  Company Number: US-COOPERSURGICAL, INC.-US-2021CPS000519

PATIENT
  Sex: Female
  Weight: 83.447 kg

DRUGS (4)
  1. PARAGARD T 380A [Suspect]
     Active Substance: COPPER
     Indication: Contraception
     Dosage: UNK
     Route: 015
     Dates: start: 20200401, end: 20200826
  2. PARAGARD T 380A [Suspect]
     Active Substance: COPPER
     Dosage: UNK
     Route: 015
     Dates: start: 20200826
  3. IRON [Concomitant]
     Active Substance: IRON
     Indication: Mineral supplementation
     Dosage: UNK
     Route: 065
  4. LEXAPRO [Concomitant]
     Active Substance: ESCITALOPRAM OXALATE
     Indication: Depression
     Dosage: UNK
     Route: 065

REACTIONS (2)
  - Back pain [Unknown]
  - Device expulsion [Recovered/Resolved]

NARRATIVE: CASE EVENT DATE: 20200101
